FAERS Safety Report 17071801 (Version 2)
Quarter: 2019Q4

REPORT INFORMATION
  Report Type: Report from Study
  Country: CH (occurrence: CH)
  Receive Date: 20191125
  Receipt Date: 20191226
  Transmission Date: 20200122
  Serious: Yes (Other)
  Sender: FDA-Public Use
  Company Number: CH-INCYTE CORPORATION-2019IN006556

PATIENT

DRUGS (9)
  1. APROVEL [Concomitant]
     Active Substance: IRBESARTAN
     Indication: BLOOD PRESSURE MEASUREMENT
     Dosage: UNK, 150
     Route: 065
  2. JAKAVI [Suspect]
     Active Substance: RUXOLITINIB
     Dosage: UNK, 20
     Route: 065
     Dates: start: 20190122, end: 20190514
  3. ELIQUIS [Concomitant]
     Active Substance: APIXABAN
     Indication: ANTICOAGULANT THERAPY
     Dosage: UNK UKN, UNK
     Route: 065
     Dates: start: 20180427
  4. JAKAVI [Suspect]
     Active Substance: RUXOLITINIB
     Dosage: UNK UKN, UNK (30)
     Route: 048
     Dates: start: 20190515
  5. JAKAVI [Suspect]
     Active Substance: RUXOLITINIB
     Dosage: UNK UKN, UNK (0)
     Route: 048
     Dates: start: 20181119, end: 20181123
  6. JAKAVI [Suspect]
     Active Substance: RUXOLITINIB
     Dosage: UNK, 20
     Route: 065
     Dates: start: 20180709, end: 20180910
  7. JAKAVI [Suspect]
     Active Substance: RUXOLITINIB
     Indication: POLYCYTHAEMIA VERA
     Dosage: UNK UKN, UNK (20)
     Route: 048
     Dates: start: 20180704, end: 20180911
  8. ASPIRIN. [Concomitant]
     Active Substance: ASPIRIN
     Indication: ANTICOAGULANT THERAPY
     Dosage: UNK UKN, UNK (1)
     Route: 065
     Dates: start: 20180427
  9. ASPIRIN. [Concomitant]
     Active Substance: ASPIRIN
     Dosage: UNK, 100
     Route: 065
     Dates: start: 20180501

REACTIONS (6)
  - Fall [Recovered/Resolved]
  - Dyspnoea [Not Recovered/Not Resolved]
  - Dyspnoea [Recovered/Resolved]
  - Wound infection [Recovered/Resolved]
  - Pruritus [Recovered/Resolved]
  - Wound infection [Recovered/Resolved]

NARRATIVE: CASE EVENT DATE: 20180704
